FAERS Safety Report 8385866-5 (Version None)
Quarter: 2012Q2

REPORT INFORMATION
  Report Type: 
  Country: None (occurrence: None)
  Receive Date: 20120523
  Receipt Date: 20120522
  Transmission Date: 20120825
  Serious: Yes (Hospitalization)
  Sender: FDA-Public Use
  Company Number: ZYD-12-AE-121

PATIENT
  Sex: Male

DRUGS (1)
  1. CARVEDILOL [Suspect]

REACTIONS (2)
  - CARDIAC DISORDER [None]
  - CHEST PAIN [None]
